FAERS Safety Report 7720458-X (Version None)
Quarter: 2011Q3

REPORT INFORMATION
  Report Type: 
  Country: None (occurrence: None)
  Receive Date: 20110831
  Receipt Date: 20110829
  Transmission Date: 20111222
  Serious: Yes (Hospitalization)
  Sender: FDA-Public Use
  Company Number: FR-SANOFI-AVENTIS-2011SA014072

PATIENT
  Age: 72 Year
  Sex: Female

DRUGS (7)
  1. SORIATANE [Concomitant]
     Route: 048
  2. LEVOTHYROXINE SODIUM [Concomitant]
     Indication: THYROID DISORDER
     Route: 048
  3. CALCIUM CARBONATE [Concomitant]
     Route: 048
  4. ROSUVASTATIN CALCIUM [Concomitant]
     Route: 048
  5. RIFAMPIN AND ISONIAZID [Suspect]
     Route: 048
     Dates: start: 20101001, end: 20110113
  6. ACETAMINOPHEN W/ PROPOXYPHENE HCL [Suspect]
     Route: 048
     Dates: end: 20110113
  7. DICLOFENAC SODIUM [Suspect]
     Route: 048
     Dates: end: 20110113

REACTIONS (5)
  - ACUTE FEBRILE NEUTROPHILIC DERMATOSIS [None]
  - PYREXIA [None]
  - RASH MACULAR [None]
  - RASH VESICULAR [None]
  - PRURITUS [None]
